FAERS Safety Report 19610448 (Version 7)
Quarter: 2022Q2

REPORT INFORMATION
  Report Type: Spontaneous
  Country: US (occurrence: US)
  Receive Date: 20210726
  Receipt Date: 20220415
  Transmission Date: 20220721
  Serious: Yes (Other)
  Sender: FDA-Public Use
  Company Number: US-PFIZER INC-2021660694

PATIENT
  Age: 84 Year
  Sex: Male

DRUGS (4)
  1. NIVESTYM [Suspect]
     Active Substance: FILGRASTIM-AAFI
     Indication: Aplastic anaemia
     Dosage: 300MCG/0.5ML
  2. NIVESTYM [Suspect]
     Active Substance: FILGRASTIM-AAFI
     Indication: Anaemia
     Dosage: 300 UG
  3. RETACRIT [Concomitant]
     Active Substance: EPOETIN ALFA-EPBX
     Indication: Refractory anaemia with an excess of blasts
     Dosage: 40000 IU/ML
  4. RETACRIT [Concomitant]
     Active Substance: EPOETIN ALFA-EPBX
     Dosage: 10000 UN/ML

REACTIONS (10)
  - Myelodysplastic syndrome [Unknown]
  - Off label use [Unknown]
  - Feeling abnormal [Unknown]
  - Memory impairment [Unknown]
  - Amnesia [Unknown]
  - Bone marrow disorder [Unknown]
  - Asthenia [Unknown]
  - Hypoacusis [Unknown]
  - Illness [Unknown]
  - Blood iron increased [Unknown]

NARRATIVE: CASE EVENT DATE: 20180101
